FAERS Safety Report 17143371 (Version 2)
Quarter: 2019Q4

REPORT INFORMATION
  Report Type: Spontaneous
  Country: PL (occurrence: PL)
  Receive Date: 20191212
  Receipt Date: 20191218
  Transmission Date: 20200122
  Serious: Yes (Other)
  Sender: FDA-Public Use
  Company Number: PL-MYLANLABS-2019M1120377

PATIENT
  Age: 73 Year
  Sex: Male

DRUGS (4)
  1. METAMIZOLE [Suspect]
     Active Substance: METAMIZOLE
     Indication: PAIN
     Dosage: UNK
     Route: 042
  2. FENTANYL. [Suspect]
     Active Substance: FENTANYL
     Indication: PAIN
     Dosage: 75 MICROGRAM, QH UP TO 75 UG, QH (EVERY 72H)
     Route: 062
  3. PARACETAMOL [Suspect]
     Active Substance: ACETAMINOPHEN
     Indication: PAIN
     Dosage: UNK
     Route: 042
  4. FENTANYL. [Suspect]
     Active Substance: FENTANYL
     Indication: PAIN
     Dosage: 400 MICROGRAM, QD, UP TO 400 UG, QD
     Route: 045

REACTIONS (4)
  - Drug dependence [Unknown]
  - Therapeutic product effect incomplete [Unknown]
  - Suicidal ideation [Unknown]
  - Pain [Unknown]
